FAERS Safety Report 9904039 (Version 1)
Quarter: 2014Q1

REPORT INFORMATION
  Report Type: Spontaneous
  Country: US (occurrence: US)
  Receive Date: 20140218
  Receipt Date: 20140218
  Transmission Date: 20141002
  Serious: No
  Sender: FDA-Public Use
  Company Number: US-BIOGENIDEC-2014BI012342

PATIENT
  Sex: Female

DRUGS (2)
  1. TECFIDERA [Suspect]
     Indication: MULTIPLE SCLEROSIS
     Route: 048
  2. TECFIDERA [Suspect]
     Indication: MULTIPLE SCLEROSIS
     Route: 048

REACTIONS (5)
  - Urinary tract infection [Recovered/Resolved]
  - Fatigue [Recovered/Resolved]
  - Gait disturbance [Recovered/Resolved]
  - Multiple sclerosis relapse [Recovered/Resolved]
  - Flushing [Recovered/Resolved]
